FAERS Safety Report 5619307-5 (Version None)
Quarter: 2008Q1

REPORT INFORMATION
  Report Type: 
  Country: None (occurrence: None)
  Receive Date: 20080206
  Receipt Date: 20080124
  Transmission Date: 20080703
  Serious: Yes (Hospitalization)
  Sender: FDA-Public Use
  Company Number: US-WYE-H02333608

PATIENT
  Age: 60 Year
  Sex: Female

DRUGS (4)
  1. CENTRUM SILVER (MULTIVITAMIN/MULTIMINERAL, TABLET) [Suspect]
     Indication: NUTRITIONAL SUPPORT
     Dosage: 1 TABLET 1X PER 1 DAY; BEGAN ^YEARS AGO^
     Route: 048
  2. ASCORBIC ACID [Concomitant]
  3. SINGULAIR [Concomitant]
  4. SYNTHROID [Concomitant]

REACTIONS (3)
  - COELIAC DISEASE [None]
  - COLITIS [None]
  - GASTROINTESTINAL DISORDER [None]
